FAERS Safety Report 4375909-8 (Version None)
Quarter: 2004Q2

REPORT INFORMATION
  Report Type: 
  Country: None (occurrence: None)
  Receive Date: 20040607
  Receipt Date: 20040525
  Transmission Date: 20050107
  Serious: Yes (Other)
  Sender: FDA-Public Use
  Company Number: HQWYE118326MAY04

PATIENT
  Age: 56 Year
  Sex: Female

DRUGS (1)
  1. EFFEXOR XR [Suspect]
     Indication: ANXIETY DISORDER
     Dosage: 37.5 MG (FREQUENCY UNKNOWN), ORAL
     Route: 048
     Dates: start: 20040519, end: 20040520

REACTIONS (15)
  - ASTHENIA [None]
  - BURNING SENSATION [None]
  - DIFFICULTY IN WALKING [None]
  - DYSGEUSIA [None]
  - FEELING ABNORMAL [None]
  - GINGIVAL PAIN [None]
  - HALITOSIS [None]
  - HYPERTENSION [None]
  - ORAL DISCOMFORT [None]
  - PAROSMIA [None]
  - PERIPHERAL COLDNESS [None]
  - PHOTOPHOBIA [None]
  - RESTLESSNESS [None]
  - THROAT IRRITATION [None]
  - WEIGHT DECREASED [None]
